FAERS Safety Report 20769671 (Version 10)
Quarter: 2025Q4

REPORT INFORMATION
  Report Type: Spontaneous
  Country: IN (occurrence: IN)
  Receive Date: 20220429
  Receipt Date: 20251029
  Transmission Date: 20260117
  Serious: Yes (Other)
  Sender: PFIZER
  Company Number: IN-PFIZER INC-2021077941

PATIENT
  Age: 64 Year
  Sex: Female

DRUGS (10)
  1. PALBOCICLIB [Suspect]
     Active Substance: PALBOCICLIB
     Indication: Breast cancer metastatic
     Dosage: 125 MG, 1X/DAY
     Route: 048
     Dates: start: 20191120
  2. PALBOCICLIB [Suspect]
     Active Substance: PALBOCICLIB
     Dosage: 125 MG
     Dates: start: 201912
  3. PALBOCICLIB [Suspect]
     Active Substance: PALBOCICLIB
     Dosage: 125 MG, 1X/DAY
     Route: 048
     Dates: start: 20201229
  4. PALBOCICLIB [Suspect]
     Active Substance: PALBOCICLIB
     Dosage: 100 MG, CYCLIC (1X/DAY FOR 21 DAYS IN A MONTH FOR 6 MONTHS)
     Route: 048
  5. FEMARA [Concomitant]
     Active Substance: LETROZOLE
     Dosage: 1 DF, DAILY (1 TABLET DAILY FOR 4 MONTHS)
  6. FULVESTRANT [Concomitant]
     Active Substance: FULVESTRANT
     Dosage: 1 TABLET DAILY FOR 3 MONTHS
  7. FULVESTRANT [Concomitant]
     Active Substance: FULVESTRANT
     Dosage: 500 MG, EVERY MONTHLY FOR 6 MONTHS (INJECTION)
     Route: 030
  8. B-COMPLEX [VITAMIN B COMPLEX] [Concomitant]
     Dosage: 1 DAILY FOR 3 MONTHS
  9. FOLVITE [Concomitant]
     Active Substance: FOLIC ACID
     Dosage: 1 DAILY FOR 3 MONTHS
  10. NEUKINE [Concomitant]
     Dosage: 300 MCG SC (SOS)
     Route: 058

REACTIONS (22)
  - Lung opacity [Recovering/Resolving]
  - Breast cancer metastatic [Unknown]
  - Malignant neoplasm progression [Unknown]
  - White blood cell count decreased [Unknown]
  - Platelet count decreased [Unknown]
  - COVID-19 [Unknown]
  - Blood thyroid stimulating hormone increased [Unknown]
  - Dyspnoea [Unknown]
  - Lymph nodes scan abnormal [Unknown]
  - Breast fibrosis [Unknown]
  - Peripheral swelling [Unknown]
  - Pain in extremity [Unknown]
  - Alopecia [Unknown]
  - Skin discolouration [Unknown]
  - Hypertension [Unknown]
  - Thyroid disorder [Unknown]
  - Lymphocyte percentage increased [Unknown]
  - Hepatomegaly [Unknown]
  - Mucosal inflammation [Unknown]
  - Anaemia [Unknown]
  - Red blood cell count decreased [Unknown]
  - Hepatic steatosis [Unknown]

NARRATIVE: CASE EVENT DATE: 20211201
